FAERS Safety Report 21143500 (Version 2)
Quarter: 2022Q3

REPORT INFORMATION
  Report Type: Spontaneous
  Country: US (occurrence: US)
  Receive Date: 20220728
  Receipt Date: 20220810
  Transmission Date: 20221027
  Serious: Yes (Hospitalization)
  Sender: FDA-Public Use
  Company Number: US-TEVA-2022-US-2057862

PATIENT
  Age: 60 Year
  Sex: Female

DRUGS (12)
  1. MYCOPHENOLIC ACID [Suspect]
     Active Substance: MYCOPHENOLIC ACID
     Indication: Immunosuppressant drug therapy
     Route: 065
  2. AZATHIOPRINE [Suspect]
     Active Substance: AZATHIOPRINE
     Indication: Immunosuppressant drug therapy
     Route: 065
  3. FLUCYTOSINE [Suspect]
     Active Substance: FLUCYTOSINE
     Indication: Candida infection
     Dosage: 1250 MILLIGRAM DAILY; 21MG/KG FROM DAY 155 POST IHD
     Route: 048
  4. FLUCYTOSINE [Suspect]
     Active Substance: FLUCYTOSINE
     Dosage: 1000 MILLIGRAM DAILY; 17 MG/KG FROM DAY 189 POST IHD
     Route: 048
  5. FLUCYTOSINE [Suspect]
     Active Substance: FLUCYTOSINE
     Dosage: 1250 MG POST-IHD (21 MG/KG) ON IHD DAYS AND 1000 MG (17 MG/KG) IN THE EVENINGS ON ALL OTHER DAYS.
     Route: 048
  6. FLUCYTOSINE [Suspect]
     Active Substance: FLUCYTOSINE
     Dosage: EVERY OTHER DAY
     Route: 048
  7. FLUCYTOSINE [Suspect]
     Active Substance: FLUCYTOSINE
     Dosage: 1500 MILLIGRAM DAILY; 25 MG/KG; INITIAL DOSE
     Route: 048
  8. MICAFUNGIN [Suspect]
     Active Substance: MICAFUNGIN
     Indication: Antifungal prophylaxis
     Dosage: 100 MILLIGRAM DAILY;
     Route: 042
  9. MICAFUNGIN [Suspect]
     Active Substance: MICAFUNGIN
     Indication: Candida infection
  10. FLUCONAZOLE [Concomitant]
     Active Substance: FLUCONAZOLE
     Indication: Candida infection
     Dosage: 200 MILLIGRAM DAILY;
     Route: 048
  11. FLUCONAZOLE [Concomitant]
     Active Substance: FLUCONAZOLE
     Dosage: 300 MILLIGRAM DAILY;
     Route: 048
  12. AMPHOTERICIN B [Concomitant]
     Active Substance: AMPHOTERICIN B
     Indication: Candida infection
     Route: 065

REACTIONS (5)
  - Candida infection [Recovered/Resolved]
  - Endocarditis candida [Recovered/Resolved]
  - Mediastinitis [Recovered/Resolved]
  - Colitis [Unknown]
  - Drug ineffective [Unknown]
